FAERS Safety Report 24435112 (Version 3)
Quarter: 2025Q3

REPORT INFORMATION
  Report Type: Report from Study
  Country: US (occurrence: US)
  Receive Date: 20241014
  Receipt Date: 20250803
  Transmission Date: 20251021
  Serious: Yes (Other)
  Sender: ALEXION PHARMACEUTICALS
  Company Number: US-AstraZeneca-CH-00715765A

PATIENT
  Sex: Female

DRUGS (1)
  1. CALQUENCE [Suspect]
     Active Substance: ACALABRUTINIB
     Indication: Lymphoplasmacytoid lymphoma/immunocytoma
     Dosage: 100 MILLIGRAM, BID
     Dates: start: 202408

REACTIONS (3)
  - Syncope [Unknown]
  - Headache [Unknown]
  - Diarrhoea [Unknown]
